FAERS Safety Report 5014800-0 (Version None)
Quarter: 2006Q2

REPORT INFORMATION
  Report Type: 
  Country: None (occurrence: None)
  Receive Date: 20060424
  Receipt Date: 20050509
  Transmission Date: 20061013
  Serious: Yes (Life-Threatening, Hospitalization, Disabling)
  Sender: FDA-Public Use
  Company Number: WAES 0505USA01129

PATIENT
  Age: 41 Year
  Sex: Female

DRUGS (5)
  1. SINGULAIR [Suspect]
     Indication: ASTHMA
     Dosage: SEE IMAGE
     Route: 048
  2. ZYRTEC [Concomitant]
  3. [THERAPY UNSPECIFIED] [Concomitant]
  4. ALBUTEROL [Concomitant]
  5. HORMONAL CONTRACEPTIVES (UNSPECIFIED) [Concomitant]

REACTIONS (2)
  - CONVULSION [None]
  - DEPRESSION [None]
